FAERS Safety Report 24216852 (Version 1)
Quarter: 2024Q3

REPORT INFORMATION
  Report Type: Spontaneous
  Country: US (occurrence: None)
  Receive Date: 20240815
  Receipt Date: 20240815
  Transmission Date: 20241017
  Serious: Yes (Hospitalization)
  Sender: Public
  Company Number: None

PATIENT
  Age: 50 Year
  Sex: Female

DRUGS (1)
  1. AMBRISENTAN [Suspect]
     Active Substance: AMBRISENTAN
     Indication: Kyphoscoliotic heart disease
     Dosage: FREQUENCY : DAILY;?
     Route: 048

REACTIONS (2)
  - Hospitalisation [None]
  - Intentional dose omission [None]
